FAERS Safety Report 6183574-2 (Version None)
Quarter: 2009Q2

REPORT INFORMATION
  Report Type: 
  Country: None (occurrence: None)
  Receive Date: 20090508
  Receipt Date: 20090427
  Transmission Date: 20091009
  Serious: Yes (Other)
  Sender: FDA-Public Use
  Company Number: GB-PFIZER INC-2009203703

PATIENT
  Age: 42 Year

DRUGS (2)
  1. PREDNISOLONE AND PREDNISOLONE STEAGLATE [Suspect]
     Indication: RHEUMATOID ARTHRITIS
     Dosage: 7.5 MG, 1X/DAY
     Route: 048
     Dates: start: 20050301, end: 20061201
  2. VOLTAREN [Suspect]
     Indication: RHEUMATOID ARTHRITIS
     Dosage: 1000 MG, 1X/DAY
     Route: 048
     Dates: start: 20050301, end: 20061201

REACTIONS (1)
  - INFERTILITY FEMALE [None]
